FAERS Safety Report 13736214 (Version 1)
Quarter: 2017Q3

REPORT INFORMATION
  Report Type: Spontaneous
  Country: US (occurrence: US)
  Receive Date: 20170710
  Receipt Date: 20170710
  Transmission Date: 20171127
  Serious: Yes (Other)
  Sender: FDA-Public Use
  Company Number: US-DEPOMED, INC.-US-2017DEP001337

PATIENT

DRUGS (2)
  1. GRALISE [Suspect]
     Active Substance: GABAPENTIN
     Indication: NEUROPATHY PERIPHERAL
     Dosage: 300 MG, QD
     Route: 048
     Dates: start: 20170109, end: 20170301
  2. GRALISE [Suspect]
     Active Substance: GABAPENTIN
     Indication: POST HERPETIC NEURALGIA
     Dosage: 600 MG, QD
     Route: 048
     Dates: start: 20170302

REACTIONS (10)
  - Lactose intolerance [Unknown]
  - Poor quality sleep [Unknown]
  - Weight increased [Unknown]
  - Anxiety [Unknown]
  - Fatigue [Unknown]
  - Product use in unapproved indication [Not Recovered/Not Resolved]
  - Body height decreased [Unknown]
  - Dizziness [Unknown]
  - Breast cancer stage II [Unknown]
  - Osteoporosis [Unknown]

NARRATIVE: CASE EVENT DATE: 20170109
